FAERS Safety Report 9371661 (Version 1)
Quarter: 2013Q2

REPORT INFORMATION
  Report Type: Spontaneous
  Country: US (occurrence: None)
  Receive Date: 20130626
  Receipt Date: 20130626
  Transmission Date: 20140414
  Serious: No
  Sender: FDA-Public Use
  Company Number: None

PATIENT
  Age: 57 Year
  Sex: Female

DRUGS (1)
  1. TECFIDERA [Suspect]
     Indication: MULTIPLE SCLEROSIS
     Dosage: 120MG/240MG STARTER PAK  BID X 7D, THEN BID THEREAFTER  ORAL?
     Route: 048
     Dates: start: 20130601

REACTIONS (2)
  - Flushing [None]
  - Migraine [None]
